FAERS Safety Report 7638227-8 (Version None)
Quarter: 2011Q3

REPORT INFORMATION
  Report Type: 
  Country: None (occurrence: None)
  Receive Date: 20110722
  Receipt Date: 20110722
  Transmission Date: 20111222
  Serious: No
  Sender: FDA-Public Use
  Company Number: None

PATIENT
  Age: 62 Year
  Sex: Female
  Weight: 97.5234 kg

DRUGS (1)
  1. LEVOTHYROXINE SODIUM [Suspect]
     Dosage: 1 DAILY ORAL
     Route: 048
     Dates: start: 20110101, end: 20110601

REACTIONS (3)
  - PAIN IN EXTREMITY [None]
  - EXERCISE TOLERANCE DECREASED [None]
  - NERVOUS SYSTEM DISORDER [None]
